FAERS Safety Report 4591327-1 (Version None)
Quarter: 2005Q1

REPORT INFORMATION
  Report Type: 
  Country: None (occurrence: None)
  Receive Date: 20050225
  Receipt Date: 20050217
  Transmission Date: 20050727
  Serious: Yes (Hospitalization)
  Sender: FDA-Public Use
  Company Number: JP-ROCHE-396024

PATIENT
  Age: 26 Year
  Sex: Male

DRUGS (3)
  1. CELLCEPT [Suspect]
     Route: 048
  2. PREDONINE [Suspect]
     Route: 048
  3. PROGRAF [Suspect]
     Route: 048

REACTIONS (1)
  - EPIDIDYMITIS [None]
